FAERS Safety Report 24118591 (Version 2)
Quarter: 2024Q4

REPORT INFORMATION
  Report Type: Spontaneous
  Country: US (occurrence: US)
  Receive Date: 20240722
  Receipt Date: 20241022
  Transmission Date: 20250115
  Serious: Yes (Disabling, Other)
  Sender: AMGEN
  Company Number: US-AMGEN-USASP2024140924

PATIENT
  Age: 72 Year
  Sex: Male
  Weight: 80 kg

DRUGS (32)
  1. TEPEZZA [Suspect]
     Active Substance: TEPROTUMUMAB-TRBW
     Indication: Endocrine ophthalmopathy
     Dosage: UNK
     Route: 042
     Dates: start: 202304, end: 202306
  2. TEPEZZA [Suspect]
     Active Substance: TEPROTUMUMAB-TRBW
     Indication: Graves^ disease
  3. PREDNISONE [Suspect]
     Active Substance: PREDNISONE
     Indication: Product used for unknown indication
     Dosage: 20 MILLIGRAM
     Route: 065
  4. ELIQUIS [Concomitant]
     Active Substance: APIXABAN
     Dosage: 5 MILLIGRAM
     Route: 048
  5. FLECAINIDE [Concomitant]
     Active Substance: FLECAINIDE
     Dosage: 100 MILLIGRAM
     Route: 065
  6. METFORMIN [Concomitant]
     Active Substance: METFORMIN HYDROCHLORIDE
     Dosage: 1000 MILLIGRAM, BID
     Route: 048
  7. HYDROCHLOROTHIAZIDE\OLMESARTAN MEDOXOMIL [Concomitant]
     Active Substance: HYDROCHLOROTHIAZIDE\OLMESARTAN MEDOXOMIL
     Dosage: UNK, QD
     Route: 048
  8. SARS-CoV-2 vaccine [Concomitant]
     Dosage: UNK
     Route: 065
     Dates: start: 20201219
  9. SARS-CoV-2 vaccine [Concomitant]
     Dosage: UNK
     Route: 065
     Dates: start: 20210119
  10. SARS-CoV-2 vaccine [Concomitant]
     Dosage: UNK
     Route: 065
     Dates: start: 20211012
  11. METHIMAZOLE [Concomitant]
     Active Substance: METHIMAZOLE
     Dosage: 5 MILLIGRAM, QD
     Route: 048
  12. METHIMAZOLE [Concomitant]
     Active Substance: METHIMAZOLE
     Dosage: 10 MILLIGRAM
     Route: 065
  13. INFLUENZA VIRUS VACCINE [Concomitant]
     Active Substance: INFLUENZA VIRUS VACCINE
     Dosage: UNK
     Route: 065
     Dates: start: 20211019
  14. INFLUENZA VIRUS VACCINE [Concomitant]
     Active Substance: INFLUENZA VIRUS VACCINE
     Dosage: UNK
     Route: 065
     Dates: start: 20221003
  15. ALPHAGAN P [Concomitant]
     Active Substance: BRIMONIDINE TARTRATE
     Dosage: UNK, BID
     Route: 047
  16. LATANOPROST [Concomitant]
     Active Substance: LATANOPROST
     Dosage: UNK, QD, 1 DROP INTO EACH EYE
     Route: 047
  17. SSKI [Concomitant]
     Active Substance: POTASSIUM IODIDE
     Dosage: 1 GRAM PER MILLILITRE, TID
     Route: 048
  18. PNEUMOCOCCAL VACCINE POLYVALENT [Concomitant]
     Active Substance: PNEUMOCOCCAL VACCINE POLYVALENT
     Dosage: UNK
     Route: 065
     Dates: start: 20190820
  19. CEPHALEXIN [Concomitant]
     Active Substance: CEPHALEXIN
     Dosage: 500 MILLIGRAM, TID
     Route: 048
  20. DORZOLAMIDE [Concomitant]
     Active Substance: DORZOLAMIDE
     Dosage: UNK, BID
     Route: 047
  21. ACETAMINOPHEN\HYDROCODONE [Concomitant]
     Active Substance: ACETAMINOPHEN\HYDROCODONE
     Dosage: UNK, Q6H
     Route: 048
  22. LEVOTHYROXINE [Concomitant]
     Active Substance: LEVOTHYROXINE
     Dosage: 150 MICROGRAM, QD
     Route: 048
  23. LEVOTHYROXINE [Concomitant]
     Active Substance: LEVOTHYROXINE
     Dosage: 125 MICROGRAM, QD
     Route: 048
  24. LEVOTHYROXINE [Concomitant]
     Active Substance: LEVOTHYROXINE
     Dosage: 100 MICROGRAM, QD
     Route: 048
  25. NEBIVOLOL [Concomitant]
     Active Substance: NEBIVOLOL
     Dosage: 5 MILLIGRAM, QD
     Route: 048
  26. CALCIUM\VITAMIN D [Concomitant]
     Active Substance: CALCIUM\VITAMIN D
     Dosage: 1 GRAM, BID
     Route: 065
  27. OSCAL [Concomitant]
     Active Substance: CALCIUM CARBONATE
     Dosage: 2 GRAM, QD
     Route: 065
  28. EUTHYROX [Concomitant]
     Active Substance: LEVOTHYROXINE SODIUM
     Dosage: 125 MICROGRAM, QD
     Route: 048
  29. GLIPIZIDE [Concomitant]
     Active Substance: GLIPIZIDE
     Dosage: 2.5 MILLIGRAM, QD
     Route: 048
  30. HUMALOG JUNIOR KWIKPEN [Concomitant]
     Active Substance: INSULIN LISPRO
     Dosage: UNK UNK, BID, (INJECT 5 UNITS)
     Route: 058
  31. AFRIN [Concomitant]
     Active Substance: OXYMETAZOLINE
     Dosage: UNK
     Route: 061
  32. TETRACAINE HYDROCHLORIDE [Concomitant]
     Active Substance: TETRACAINE HYDROCHLORIDE
     Dosage: UNK
     Route: 061

REACTIONS (32)
  - Deafness neurosensory [Not Recovered/Not Resolved]
  - Endocrine ophthalmopathy [Unknown]
  - Graves^ disease [Unknown]
  - Diabetes mellitus [Unknown]
  - Atrial fibrillation [Unknown]
  - Glaucoma [Unknown]
  - Injury [Unknown]
  - Emotional distress [Unknown]
  - Anxiety [Unknown]
  - Quality of life decreased [Unknown]
  - Discomfort [Unknown]
  - Blood glucose increased [Unknown]
  - Tinnitus [Not Recovered/Not Resolved]
  - Product use complaint [Unknown]
  - Palpitations [Recovering/Resolving]
  - Blood thyroid stimulating hormone decreased [Unknown]
  - Tri-iodothyronine free increased [Unknown]
  - Thyroxine free decreased [Unknown]
  - Red blood cell count decreased [Unknown]
  - Haemoglobin decreased [Unknown]
  - Haematocrit decreased [Unknown]
  - Red cell distribution width increased [Unknown]
  - Eosinophil count increased [Unknown]
  - Mean cell volume decreased [Unknown]
  - Thyroxine free increased [Unknown]
  - Lymphocyte count decreased [Unknown]
  - Monocyte count increased [Unknown]
  - Thyroid stimulating immunoglobulin increased [Unknown]
  - Calcium ionised decreased [Unknown]
  - Blood pressure increased [Unknown]
  - Heart rate increased [Recovering/Resolving]
  - Glycosylated haemoglobin increased [Unknown]

NARRATIVE: CASE EVENT DATE: 20211104
